FAERS Safety Report 8604507 (Version 9)
Quarter: 2012Q4

REPORT INFORMATION
  Report Type: 
  Country: AU (occurrence: AU)
  Receive Date: 20120608
  Receipt Date: 20121008
  Transmission Date: 20130627
  Serious: Yes (Hospitalization, Disabling, Other)
  Sender: FDA-Public Use
  Company Number: PHHY2012AU047442

PATIENT
  Age: 52 None
  Sex: Female

DRUGS (6)
  1. CLOZARIL [Suspect]
     Indication: SCHIZOPHRENIA
     Dosage: 200 mg, (50 mg mane, 150 mg nocte)
     Route: 048
     Dates: start: 20120508, end: 20120523
  2. CLOZARIL [Suspect]
     Dosage: 300 mg
     Route: 048
  3. CLOZARIL [Suspect]
     Dosage: 250 mg
     Route: 048
     Dates: start: 20120508, end: 20120807
  4. VALPROATE SODIUM [Concomitant]
     Indication: AFFECTIVE DISORDER
     Dosage: 500 mg, BID
     Dates: end: 20120818
  5. THYROXINE [Concomitant]
     Indication: HYPOTHYROIDISM
     Dosage: 100 ug, QD
     Route: 048
  6. PALIPERIDONE [Concomitant]
     Indication: SCHIZOPHRENIA
     Dosage: 150 mg, (monthly)
     Route: 030
     Dates: end: 20120515

REACTIONS (22)
  - Schizophrenia [Unknown]
  - Pneumonia [Unknown]
  - Liver function test abnormal [Recovered/Resolved]
  - Tachycardia [Recovered/Resolved]
  - Sinus tachycardia [Unknown]
  - Renal failure acute [Recovered/Resolved]
  - Blood creatinine increased [Unknown]
  - Glomerular filtration rate decreased [Unknown]
  - Faecal incontinence [Recovered/Resolved]
  - Circulatory collapse [Recovered/Resolved]
  - Pyrexia [Unknown]
  - Urinary tract infection bacterial [Recovered/Resolved]
  - Troponin increased [Recovered/Resolved]
  - Electrocardiogram QT prolonged [Recovered/Resolved]
  - Tubulointerstitial nephritis [Unknown]
  - Malaise [Unknown]
  - Lymphocyte count decreased [Not Recovered/Not Resolved]
  - Eosinophil count increased [Not Recovered/Not Resolved]
  - Diarrhoea [Unknown]
  - Antipsychotic drug level increased [Unknown]
  - Blood glucose increased [Unknown]
  - Blood lactate dehydrogenase increased [Unknown]
